FAERS Safety Report 5641895-3 (Version None)
Quarter: 2008Q1

REPORT INFORMATION
  Report Type: 
  Country: None (occurrence: None)
  Receive Date: 20080227
  Receipt Date: 20080218
  Transmission Date: 20080703
  Serious: Yes (Other)
  Sender: FDA-Public Use
  Company Number: CH-PFIZER INC-2008015396

PATIENT
  Age: 75 Year
  Sex: Female

DRUGS (1)
  1. SALAZOPYRIN EN [Suspect]
     Indication: RHEUMATOID ARTHRITIS

REACTIONS (1)
  - DUODENAL ULCER PERFORATION [None]
